FAERS Safety Report 8313444 (Version 13)
Quarter: 2016Q2

REPORT INFORMATION
  Report Type: Report from Study
  Country: CA (occurrence: CA)
  Receive Date: 20111228
  Receipt Date: 20160622
  Transmission Date: 20160815
  Serious: Yes (Death, Hospitalization, Other)
  Sender: FDA-Public Use
  Company Number: PHHY2011CA89023

PATIENT
  Age: 46 Year
  Sex: Female

DRUGS (6)
  1. AFINITOR [Suspect]
     Active Substance: EVEROLIMUS
     Indication: NEUROENDOCRINE TUMOUR
     Dosage: 10 MG, QD
     Route: 048
     Dates: start: 20111121, end: 2014
  2. FUROSEMIDE. [Concomitant]
     Active Substance: FUROSEMIDE
     Indication: PRODUCT USED FOR UNKNOWN INDICATION
     Route: 065
  3. CAPECITABINE. [Suspect]
     Active Substance: CAPECITABINE
     Dosage: UNK
     Route: 065
     Dates: start: 20150928
  4. SANDOSTATIN LAR DEPOT [Suspect]
     Active Substance: OCTREOTIDE ACETATE
     Indication: NEUROENDOCRINE TUMOUR
     Dosage: 30 MG, (EVERY TWO WEEKS)
     Route: 030
     Dates: start: 20110526
  5. SANDOSTATIN LAR DEPOT [Suspect]
     Active Substance: OCTREOTIDE ACETATE
     Dosage: 60 MG, (EVERY 2 WEEKS)
     Route: 030
  6. CAPECITABINE. [Suspect]
     Active Substance: CAPECITABINE
     Indication: PRODUCT USED FOR UNKNOWN INDICATION
     Dosage: 800 MG, BID
     Route: 065
     Dates: start: 20150831

REACTIONS (28)
  - Neck pain [Recovered/Resolved]
  - Alopecia [Unknown]
  - Sepsis [Recovered/Resolved]
  - Hypersomnia [Unknown]
  - Tearfulness [Unknown]
  - Respiratory rate increased [Unknown]
  - Poor quality sleep [Unknown]
  - General physical health deterioration [Unknown]
  - Death [Fatal]
  - Ascites [Unknown]
  - Weight decreased [Unknown]
  - Diarrhoea [Unknown]
  - Fatigue [Recovering/Resolving]
  - Night sweats [Recovering/Resolving]
  - Musculoskeletal pain [Not Recovered/Not Resolved]
  - Blood glucose decreased [Unknown]
  - Malaise [Unknown]
  - Cough [Unknown]
  - Blood pressure decreased [Unknown]
  - Asthenia [Unknown]
  - Infection [Unknown]
  - Neoplasm [Unknown]
  - Malignant neoplasm progression [Unknown]
  - Haemoglobin decreased [Unknown]
  - Pyrexia [Unknown]
  - Abdominal distension [Not Recovered/Not Resolved]
  - Decreased appetite [Recovering/Resolving]
  - Inappropriate schedule of drug administration [Unknown]

NARRATIVE: CASE EVENT DATE: 20110526
